FAERS Safety Report 8252336-4 (Version None)
Quarter: 2012Q2

REPORT INFORMATION
  Report Type: 
  Country: None (occurrence: None)
  Receive Date: 20120402
  Receipt Date: 20110511
  Transmission Date: 20120825
  Serious: No
  Sender: FDA-Public Use
  Company Number: US-ABBOTT-11P-163-0804565-00

PATIENT
  Sex: Female
  Weight: 61.364 kg

DRUGS (1)
  1. TESTOSTERONE [Suspect]
     Indication: ACCIDENTAL EXPOSURE
     Dosage: DAILY DOSE:  UNKNOWN
     Route: 062

REACTIONS (6)
  - VAGINAL DISCHARGE [None]
  - MENSTRUATION IRREGULAR [None]
  - HIRSUTISM [None]
  - ACCIDENTAL EXPOSURE [None]
  - ACNE [None]
  - VAGINAL ODOUR [None]
